FAERS Safety Report 4618395-2 (Version None)
Quarter: 2005Q1

REPORT INFORMATION
  Report Type: 
  Country: None (occurrence: None)
  Receive Date: 20050323
  Receipt Date: 20050310
  Transmission Date: 20050727
  Serious: Yes (Life-Threatening, Other)
  Sender: FDA-Public Use
  Company Number: 2005044540

PATIENT
  Age: 76 Year
  Sex: Male

DRUGS (4)
  1. ALDACTONE [Suspect]
     Indication: CARDIAC FAILURE
     Dosage: 500 MG (50 MG, INTERVAL:  EVERY DAY), ORAL
     Route: 048
     Dates: start: 20041101
  2. FUROSEMIDE [Suspect]
     Indication: CARDIAC FAILURE
     Dosage: 80 MG (INTERVAL:  EVERY DAY), ORAL
     Route: 048
     Dates: start: 20041101
  3. INDAPAMIDE [Suspect]
     Indication: CARDIAC FAILURE
     Dosage: 100 MG (INTERVAL:  EVERY DAY), ORAL
     Route: 048
     Dates: start: 20041101
  4. PERINDOPRIL (PERINDOPRIL) [Suspect]
     Indication: CARDIAC FAILURE
     Dosage: 100 MG (DAILY), ORAL
     Route: 048
     Dates: start: 20041101

REACTIONS (8)
  - BLOOD CREATININE INCREASED [None]
  - BLOOD POTASSIUM INCREASED [None]
  - BLOOD PRESSURE SYSTOLIC DECREASED [None]
  - BLOOD SODIUM DECREASED [None]
  - BUNDLE BRANCH BLOCK RIGHT [None]
  - DEPRESSED LEVEL OF CONSCIOUSNESS [None]
  - MYOCLONUS [None]
  - POLYURIA [None]
